FAERS Safety Report 4527589-6 (Version None)
Quarter: 2004Q4

REPORT INFORMATION
  Report Type: 
  Country: None (occurrence: None)
  Receive Date: 20041215
  Receipt Date: 20041206
  Transmission Date: 20050328
  Serious: Yes (Other)
  Sender: FDA-Public Use
  Company Number: PHBS2004JP16456

PATIENT

DRUGS (2)
  1. ANTIDEPRESSANTS [Suspect]
     Dosage: ^LOTS^
     Dates: start: 20041205, end: 20041205
  2. GLEEVEC [Suspect]
     Dosage: 14 DF, ONCE/SINGLE
     Route: 048
     Dates: start: 20041205, end: 20041205

REACTIONS (4)
  - DEPRESSED LEVEL OF CONSCIOUSNESS [None]
  - INTENTIONAL OVERDOSE [None]
  - MULTIPLE DRUG OVERDOSE [None]
  - SUICIDE ATTEMPT [None]
